FAERS Safety Report 6993890-X (Version None)
Quarter: 2010Q3

REPORT INFORMATION
  Report Type: 
  Country: None (occurrence: None)
  Receive Date: 20100917
  Receipt Date: 20100426
  Transmission Date: 20110219
  Serious: No
  Sender: FDA-Public Use
  Company Number: US-ASTRAZENECA-2010SE13385

PATIENT
  Age: 30 Year
  Sex: Female
  Weight: 115.2 kg

DRUGS (3)
  1. SEROQUEL [Suspect]
     Indication: BIPOLAR DISORDER
     Route: 048
     Dates: start: 20091101, end: 20100101
  2. SEROQUEL [Suspect]
     Indication: GENERALISED ANXIETY DISORDER
     Route: 048
     Dates: start: 20091101, end: 20100101
  3. SEROQUEL [Suspect]
     Indication: BORDERLINE PERSONALITY DISORDER
     Route: 048
     Dates: start: 20091101, end: 20100101

REACTIONS (4)
  - DRUG DOSE OMISSION [None]
  - HYPERSEXUALITY [None]
  - MANIA [None]
  - WEIGHT INCREASED [None]
